FAERS Safety Report 11573669 (Version 1)
Quarter: 2015Q3

REPORT INFORMATION
  Report Type: Spontaneous
  Country: US (occurrence: US)
  Receive Date: 20150929
  Receipt Date: 20150929
  Transmission Date: 20151125
  Serious: No
  Sender: FDA-Public Use
  Company Number: US-GE HEALTHCARE MEDICAL DIAGNOSTICS-M123-PR-1508L-0010

PATIENT
  Age: 61 Year
  Sex: Male

DRUGS (4)
  1. REMERON [Interacting]
     Active Substance: MIRTAZAPINE
     Indication: PRODUCT USED FOR UNKNOWN INDICATION
  2. ADREVIEW [Suspect]
     Active Substance: IOBENGUANE I-123
     Indication: PHAEOCHROMOCYTOMA
     Route: 042
  3. PHENOXYBENZAMINE [Concomitant]
     Active Substance: PHENOXYBENZAMINE
  4. ADREVIEW [Interacting]
     Active Substance: IOBENGUANE I-123
     Indication: DIAGNOSTIC PROCEDURE

REACTIONS (2)
  - Radioisotope scan abnormal [Recovered/Resolved]
  - No adverse event [None]
